FAERS Safety Report 8320553-0 (Version None)
Quarter: 2012Q2

REPORT INFORMATION
  Report Type: 
  Country: None (occurrence: None)
  Receive Date: 20120430
  Receipt Date: 20120419
  Transmission Date: 20120825
  Serious: Yes (Hospitalization, Other)
  Sender: FDA-Public Use
  Company Number: US-PFIZER INC-2012071496

PATIENT
  Age: 46 Year
  Sex: Female
  Weight: 109 kg

DRUGS (2)
  1. SUNITINIB MALATE [Suspect]
     Indication: COLON CANCER
     Dosage: 50 MG, ON DAYS 1-28
     Route: 048
     Dates: start: 20120206
  2. PLAQUENIL [Suspect]
     Indication: COLON CANCER
     Dosage: 200 MG, TWICE DAILY ON DAYS 4-42 (CYCLE1) AND 1-42 (CYCLE2)
     Route: 048
     Dates: start: 20120206

REACTIONS (4)
  - SKIN ULCER [None]
  - FATIGUE [None]
  - COLONIC FISTULA [None]
  - SKIN INFECTION [None]
